FAERS Safety Report 4893276-8 (Version None)
Quarter: 2006Q1

REPORT INFORMATION
  Report Type: 
  Country: None (occurrence: None)
  Receive Date: 20060124
  Receipt Date: 20060117
  Transmission Date: 20060701
  Serious: Yes (Life-Threatening)
  Sender: FDA-Public Use
  Company Number: 200510805BNE

PATIENT
  Age: 85 Year
  Sex: Female

DRUGS (26)
  1. CIPROFLOXACIN [Suspect]
     Indication: ACINETOBACTER INFECTION
     Dosage: 750 MG, TOTAL DAILY, ORAL
     Route: 048
     Dates: start: 20051110, end: 20051111
  2. LORMETAZEPAM [Suspect]
     Indication: INSOMNIA
     Dosage: 0.5 MG, TOTAL DAILY, ORAL
     Route: 048
     Dates: start: 20051110, end: 20051111
  3. PARACETAMOL [Concomitant]
  4. ORAMORPH SR [Concomitant]
  5. AMLODIPINE [Concomitant]
  6. SIMVASTATIN [Concomitant]
  7. VENDROFLUMETHIAZIDE [Concomitant]
  8. OXYCONTIN [Concomitant]
  9. ASPIRIN [Concomitant]
  10. LACTULOSE [Concomitant]
  11. SENNA [Concomitant]
  12. CLOTRIMAZOLE [Concomitant]
  13. TRAMADOL [Concomitant]
  14. MORPHINE [Concomitant]
  15. CYCLIZINE [Concomitant]
  16. FRAGMIN [Concomitant]
  17. CEFUROXIME [Concomitant]
  18. DEXAMETHASONE TAB [Concomitant]
  19. KAOLIN [Concomitant]
  20. HUMAN ACTRAPID [Concomitant]
  21. HUMULIN S [Concomitant]
  22. MOVICOL [Concomitant]
  23. AMOXICILLIN AND CLAVULANATE POTASSIUM [Concomitant]
  24. ONDANSETRON [Concomitant]
  25. TRIMETHOPRIM [Concomitant]
  26. ANUSOL [Concomitant]

REACTIONS (3)
  - ANGIONEUROTIC OEDEMA [None]
  - OXYGEN SATURATION DECREASED [None]
  - RALES [None]
